FAERS Safety Report 6477464-5 (Version None)
Quarter: 2009Q4

REPORT INFORMATION
  Report Type: 
  Country: None (occurrence: None)
  Receive Date: 20091207
  Receipt Date: 20091116
  Transmission Date: 20100525
  Serious: Yes (Death, Hospitalization)
  Sender: FDA-Public Use
  Company Number: GB-SANOFI-AVENTIS-2009SA002714

PATIENT
  Sex: Male
  Weight: 73 kg

DRUGS (4)
  1. TAXOTERE [Suspect]
     Indication: PROSTATE CANCER
     Route: 041
     Dates: start: 20091028, end: 20091028
  2. TAXOTERE [Suspect]
     Route: 041
     Dates: start: 20090814, end: 20090814
  3. ZOLEDRONIC ACID [Suspect]
     Indication: PROSTATE CANCER
     Route: 042
     Dates: start: 20091028, end: 20091028
  4. ZOLEDRONIC ACID [Suspect]
     Route: 042
     Dates: start: 20090814, end: 20090814

REACTIONS (3)
  - ACUTE RESPIRATORY DISTRESS SYNDROME [None]
  - DYSPNOEA [None]
  - HYPOXIA [None]
